FAERS Safety Report 9858194 (Version 1)
Quarter: 2014Q1

REPORT INFORMATION
  Report Type: Spontaneous
  Country: NO (occurrence: NO)
  Receive Date: 20140131
  Receipt Date: 20140131
  Transmission Date: 20141002
  Serious: Yes (Hospitalization)
  Sender: FDA-Public Use
  Company Number: NO-JNJFOC-20140113707

PATIENT
  Age: 49 Year
  Sex: Male

DRUGS (3)
  1. RISPERDAL [Suspect]
     Indication: SCHIZOPHRENIA
     Route: 065
  2. OLANZAPINE [Interacting]
     Indication: SCHIZOPHRENIA
  3. LIPITOR [Interacting]
     Indication: BLOOD CHOLESTEROL INCREASED
     Dates: start: 20131110, end: 20140104

REACTIONS (6)
  - Hypoxia [Recovering/Resolving]
  - Rhabdomyolysis [Recovering/Resolving]
  - Drug interaction [Unknown]
  - Asthenia [Recovering/Resolving]
  - Myalgia [Recovering/Resolving]
  - Body temperature increased [Recovering/Resolving]
